FAERS Safety Report 6373035-X (Version None)
Quarter: 2009Q3

REPORT INFORMATION
  Report Type: 
  Country: None (occurrence: None)
  Receive Date: 20090924
  Receipt Date: 20090722
  Transmission Date: 20100115
  Serious: No
  Sender: FDA-Public Use
  Company Number: US-ASTRAZENECA-2009SE05677

PATIENT
  Age: 27 Year
  Sex: Female

DRUGS (2)
  1. SEROQUEL XR [Suspect]
     Indication: PSYCHIATRIC SYMPTOM
     Dosage: 300-400 MG DAILY
     Route: 048
  2. SEROQUEL XR [Suspect]
     Route: 048

REACTIONS (1)
  - TENSION HEADACHE [None]
